FAERS Safety Report 8827592 (Version 1)
Quarter: 2012Q4

REPORT INFORMATION
  Report Type: 
  Country: CA (occurrence: CA)
  Receive Date: 20121008
  Receipt Date: 20121008
  Transmission Date: 20130627
  Serious: Yes (Other)
  Sender: FDA-Public Use
  Company Number: CA-JNJFOC-20121002059

PATIENT
  Age: 2 Year
  Sex: Female
  Weight: 12.25 kg

DRUGS (2)
  1. CHILDRENS TYLENOL SUSPENSION LIQUID GRAPE [Suspect]
     Indication: BACK PAIN
     Route: 048
     Dates: start: 20120921, end: 20120922
  2. AN UNKNOWN MEDICATION [Concomitant]
     Route: 065

REACTIONS (4)
  - Malaise [Unknown]
  - Hypersomnia [Unknown]
  - Vomiting [Recovered/Resolved]
  - Abdominal pain upper [Recovered/Resolved]
